FAERS Safety Report 24369846 (Version 1)
Quarter: 2024Q3

REPORT INFORMATION
  Report Type: Spontaneous
  Country: FR (occurrence: FR)
  Receive Date: 20240927
  Receipt Date: 20240927
  Transmission Date: 20241017
  Serious: Yes (Hospitalization, Other)
  Sender: CELLTRION
  Company Number: None

PATIENT

DRUGS (2)
  1. RITUXIMAB [Suspect]
     Active Substance: RITUXIMAB
     Indication: Vasculitis
     Dosage: 375 MG/M2
     Dates: start: 20220715
  2. AVACOPAN [Suspect]
     Active Substance: AVACOPAN
     Indication: Vasculitis
     Dosage: 60 MG (30 MG X2)
     Route: 048
     Dates: start: 20220713

REACTIONS (1)
  - Cardiomyopathy acute [Not Recovered/Not Resolved]

NARRATIVE: CASE EVENT DATE: 20220725
